FAERS Safety Report 13089253 (Version 3)
Quarter: 2018Q1

REPORT INFORMATION
  Report Type: Report from Study
  Country: NL (occurrence: NL)
  Receive Date: 20170105
  Receipt Date: 20180202
  Transmission Date: 20180508
  Serious: Yes (Death)
  Sender: FDA-Public Use
  Company Number: NL-PFIZER INC-2017002061

PATIENT

DRUGS (2)
  1. TOPOTECAN HYDROCHLORIDE. [Suspect]
     Active Substance: TOPOTECAN HYDROCHLORIDE
     Indication: NEOPLASM
     Dosage: 4 MG, CYCLIC (ONLY ON DAYS 1 AND 15 IN C1)
     Route: 048
  2. PAZOPANIB [Suspect]
     Active Substance: PAZOPANIB
     Indication: NEOPLASM
     Dosage: 800 MG, DAILY (FROM D2, C1 CONTINUOUS DOSING))
     Route: 048

REACTIONS (1)
  - Pulmonary haemorrhage [Fatal]
